FAERS Safety Report 23499264 (Version 3)
Quarter: 2024Q1

REPORT INFORMATION
  Report Type: Report from Study
  Country: US (occurrence: US)
  Receive Date: 20240208
  Receipt Date: 20240223
  Transmission Date: 20240409
  Serious: Yes (Hospitalization, Other)
  Sender: FDA-Public Use
  Company Number: US-GILEAD-2024-0661393

PATIENT
  Sex: Female

DRUGS (6)
  1. AMBRISENTAN [Suspect]
     Active Substance: AMBRISENTAN
     Indication: Pulmonary hypertension
     Dosage: 10 MG, QD
     Route: 065
     Dates: start: 20190205
  2. AMBRISENTAN [Suspect]
     Active Substance: AMBRISENTAN
     Dosage: 10 MG, QD
     Route: 065
     Dates: start: 20190722
  3. TYVASO [Concomitant]
     Active Substance: TREPROSTINIL
  4. ADCIRCA [Concomitant]
     Active Substance: TADALAFIL
  5. ELIQUIS [Concomitant]
     Active Substance: APIXABAN
  6. AMLODIPINE [Concomitant]
     Active Substance: AMLODIPINE BESYLATE

REACTIONS (3)
  - Cardiac failure congestive [Unknown]
  - Cardiac failure acute [Unknown]
  - Respiratory distress [Unknown]
